FAERS Safety Report 11517510 (Version 1)
Quarter: 2015Q3

REPORT INFORMATION
  Report Type: Spontaneous
  Country: FR (occurrence: FR)
  Receive Date: 20150917
  Receipt Date: 20150917
  Transmission Date: 20151125
  Serious: Yes (Hospitalization, Other)
  Sender: FDA-Public Use
  Company Number: FR-MYLANLABS-2015M1031167

PATIENT

DRUGS (2)
  1. FONDAPARINUX [Suspect]
     Active Substance: FONDAPARINUX
     Indication: PHLEBITIS
     Dosage: UNK
  2. LOVENOX [Suspect]
     Active Substance: ENOXAPARIN SODIUM
     Indication: PRODUCT USED FOR UNKNOWN INDICATION
     Dosage: UNK
     Route: 065

REACTIONS (1)
  - Heparin-induced thrombocytopenia [Recovering/Resolving]
